FAERS Safety Report 25898832 (Version 3)
Quarter: 2025Q4

REPORT INFORMATION
  Report Type: Spontaneous
  Country: US (occurrence: US)
  Receive Date: 20251009
  Receipt Date: 20251202
  Transmission Date: 20260118
  Serious: Yes (Hospitalization, Other)
  Sender: BRISTOL-MYERS SQUIBB COMPANY
  Company Number: US-BRISTOL-MYERS SQUIBB COMPANY-2025-134977

PATIENT
  Age: 70 Year
  Sex: Male

DRUGS (2)
  1. POMALYST [Suspect]
     Active Substance: POMALIDOMIDE
     Indication: Prostatic specific antigen increased
     Dosage: TAKE 1 CAPSULE BY MOUTH WITH OR WITHOUT FOOD ONCE DAILY FOR 21 DAYS THEN 7 DAYS OFF
     Route: 048
  2. POMALYST [Suspect]
     Active Substance: POMALIDOMIDE
     Dosage: TAKE 1 CAPSULE BY MOUTH WITH OR WITHOUT FOOD ONCE DAILY FOR 21 DAYS THEN 7 DAYS OFF
     Route: 048

REACTIONS (5)
  - Cerebral haemorrhage [Recovered/Resolved]
  - Off label use [Unknown]
  - Fall [Recovered/Resolved]
  - Loss of consciousness [Recovered/Resolved]
  - Product dose omission in error [Unknown]
